FAERS Safety Report 13280494 (Version 1)
Quarter: 2017Q1

REPORT INFORMATION
  Report Type: Spontaneous
  Country: US (occurrence: US)
  Receive Date: 20170228
  Receipt Date: 20170228
  Transmission Date: 20170428
  Serious: Yes (Other)
  Sender: FDA-Public Use
  Company Number: None

PATIENT
  Age: 3 Year
  Sex: Male
  Weight: 11.7 kg

DRUGS (2)
  1. POLYETHYLENE GLYCOL 3350 NF [Suspect]
     Active Substance: POLYETHYLENE GLYCOL 3350
     Indication: CONSTIPATION
     Dosage: ?          QUANTITY:17 17 GRAM;?
     Route: 048
     Dates: start: 20170221, end: 20170223
  2. X-LAX [Concomitant]

REACTIONS (7)
  - Dyspnoea [None]
  - Cough [None]
  - Hypersensitivity [None]
  - Rhinorrhoea [None]
  - Speech disorder [None]
  - Feeling abnormal [None]
  - Dizziness [None]

NARRATIVE: CASE EVENT DATE: 20170222
